FAERS Safety Report 12473936 (Version 1)
Quarter: 2016Q2

REPORT INFORMATION
  Report Type: Spontaneous
  Country: TR (occurrence: TR)
  Receive Date: 20160616
  Receipt Date: 20160616
  Transmission Date: 20160815
  Serious: Yes (Congenital Anomaly, Other)
  Sender: FDA-Public Use
  Company Number: TR-FRESENIUS KABI-FK201603675

PATIENT

DRUGS (2)
  1. CARBAMAZEPINE. [Suspect]
     Active Substance: CARBAMAZEPINE
     Indication: EPILEPSY
     Route: 064
  2. VALPROATE [Suspect]
     Active Substance: VALPROIC ACID
     Indication: EPILEPSY
     Route: 064

REACTIONS (6)
  - Foetal exposure during pregnancy [Unknown]
  - Withdrawal syndrome [Unknown]
  - Hyponatraemia [Unknown]
  - Atrial septal defect [Unknown]
  - Hypomagnesaemia [Unknown]
  - Selective eating disorder [Unknown]
